FAERS Safety Report 17335267 (Version 2)
Quarter: 2020Q1

REPORT INFORMATION
  Report Type: Spontaneous
  Country: US (occurrence: US)
  Receive Date: 20200128
  Receipt Date: 20200214
  Transmission Date: 20200409
  Serious: No
  Sender: FDA-Public Use
  Company Number: US-BAYER-2020-014345

PATIENT
  Age: 6 Year
  Sex: Male

DRUGS (3)
  1. CLARITIN [Suspect]
     Active Substance: LORATADINE
     Indication: NASOPHARYNGITIS
  2. CLARITIN [Suspect]
     Active Substance: LORATADINE
     Indication: ALLERGIC RESPIRATORY SYMPTOM
     Dosage: 1 TO 2 TABLETS DAILY
     Route: 048
     Dates: start: 201912, end: 20200124
  3. VITAMINS NOS [Concomitant]
     Active Substance: VITAMINS
     Dosage: 2 CHEWABLES, 3 TO 5 TIMES A WEEK

REACTIONS (4)
  - Extra dose administered [Unknown]
  - Dysuria [None]
  - Pollakiuria [Unknown]
  - Drug ineffective [Unknown]

NARRATIVE: CASE EVENT DATE: 201912
